FAERS Safety Report 4812868-5 (Version None)
Quarter: 2005Q4

REPORT INFORMATION
  Report Type: 
  Country: None (occurrence: None)
  Receive Date: 20051028
  Receipt Date: 20041130
  Transmission Date: 20060501
  Serious: No
  Sender: FDA-Public Use
  Company Number: US-GLAXOSMITHKLINE-A0535547A

PATIENT
  Age: 78 Year
  Sex: Female

DRUGS (6)
  1. ADVAIR DISKUS 100/50 [Suspect]
     Indication: ASTHMA
     Dosage: 1PUFF TWICE PER DAY
     Route: 055
     Dates: start: 20040614
  2. SEREVENT [Suspect]
     Indication: ASTHMA
     Dosage: 1PUFF TWICE PER DAY
     Route: 055
     Dates: start: 20030904, end: 20040404
  3. COUMADIN [Concomitant]
  4. COMBIVENT [Concomitant]
  5. FLOVENT [Concomitant]
  6. PREDNISONE [Concomitant]

REACTIONS (4)
  - CHEST PAIN [None]
  - DISCOMFORT [None]
  - DYSPNOEA [None]
  - FATIGUE [None]
